FAERS Safety Report 9830044 (Version 4)
Quarter: 2014Q1

REPORT INFORMATION
  Report Type: Report from Study
  Country: CA (occurrence: CA)
  Receive Date: 20140120
  Receipt Date: 20140306
  Transmission Date: 20141002
  Serious: Yes (Hospitalization)
  Sender: FDA-Public Use
  Company Number: CA-VERTEX PHARMACEUTICALS INC-2014-000175

PATIENT
  Age: 27 Year
  Sex: Male
  Weight: 74 kg

DRUGS (13)
  1. VX-661 [Suspect]
     Indication: CYSTIC FIBROSIS
     Dosage: 50 MG, Q12H
     Route: 048
     Dates: start: 20131120, end: 20131217
  2. VX-770 [Suspect]
     Indication: CYSTIC FIBROSIS
     Dosage: 150 MG, Q12H
     Route: 048
     Dates: start: 20131120, end: 20131217
  3. TOBI [Concomitant]
     Indication: CYSTIC FIBROSIS LUNG
     Dosage: 112 MG, BID
     Route: 055
     Dates: start: 201110
  4. AZITHROMYCIN [Concomitant]
     Indication: CYSTIC FIBROSIS LUNG
     Dosage: 500 MG, QOD
     Route: 048
     Dates: start: 20070123
  5. VENTOLIN [Concomitant]
     Indication: CYSTIC FIBROSIS LUNG
     Dosage: 1 ML, BID
     Route: 055
     Dates: start: 1986
  6. PULMICORT [Concomitant]
     Indication: CYSTIC FIBROSIS LUNG
     Dosage: 800 ?G, BID
     Route: 055
     Dates: start: 20130206
  7. HYPERTONIC SALINE SOLUTION [Concomitant]
     Indication: CYSTIC FIBROSIS LUNG
     Dosage: 4 ML, QD
     Route: 055
     Dates: start: 201303
  8. CATAZYME [Concomitant]
     Indication: PANCREATIC INSUFFICIENCY
     Dosage: 3 TAB W/MEAL, 5 TAB /SNACK
     Route: 048
     Dates: start: 201209
  9. FLINTSTONES MULTIPLE VITAMINS [Concomitant]
     Indication: NUTRITIONAL SUPPLEMENTATION
     Dosage: 2 TAB, QD
     Route: 048
     Dates: start: 201309
  10. VITAMIN E [Concomitant]
     Indication: NUTRITIONAL SUPPLEMENTATION
     Dosage: 1 TAB, QD
     Route: 048
     Dates: start: 201309
  11. VITAMIN D [Concomitant]
     Indication: NUTRITIONAL SUPPLEMENTATION
     Dosage: 1000 IU, QD
     Route: 048
     Dates: start: 2007
  12. LEVEMIR [Concomitant]
     Indication: CYSTIC FIBROSIS RELATED DIABETES
     Dosage: 8 IU, QD
     Route: 058
     Dates: start: 20130911
  13. HUMALOG [Concomitant]
     Indication: CYSTIC FIBROSIS RELATED DIABETES
     Dosage: SCALE, TID
     Route: 058
     Dates: start: 20140114

REACTIONS (1)
  - Infective pulmonary exacerbation of cystic fibrosis [Recovered/Resolved]
